FAERS Safety Report 25154933 (Version 1)
Quarter: 2025Q2

REPORT INFORMATION
  Report Type: Spontaneous
  Country: US (occurrence: None)
  Receive Date: 20250402
  Receipt Date: 20250402
  Transmission Date: 20250717
  Serious: Yes (Death)
  Sender: FDA-CTU
  Company Number: None

PATIENT
  Age: 82 Year
  Sex: Female

DRUGS (1)
  1. PIRFENIDONE [Suspect]
     Active Substance: PIRFENIDONE
     Indication: Interstitial lung disease
     Dosage: 801MG TID ORAL?
     Route: 048
     Dates: start: 20240501, end: 20241219

REACTIONS (3)
  - Respiratory failure [None]
  - Interstitial lung disease [None]
  - Condition aggravated [None]

NARRATIVE: CASE EVENT DATE: 20241219
